FAERS Safety Report 12760245 (Version 1)
Quarter: 2016Q3

REPORT INFORMATION
  Report Type: Spontaneous
  Country: US (occurrence: US)
  Receive Date: 20160919
  Receipt Date: 20160919
  Transmission Date: 20161109
  Serious: Yes (Death)
  Sender: FDA-Public Use
  Company Number: US-PFIZER INC-2016430193

PATIENT
  Age: 64 Year
  Sex: Female

DRUGS (2)
  1. SUTENT [Suspect]
     Active Substance: SUNITINIB MALATE
     Indication: RENAL CANCER
     Dosage: 37.5 MG, CYCLIC, [28 DAYS ON/14 DAYS OFF]
  2. NOVOLIN [Concomitant]
     Active Substance: INSULIN HUMAN
     Dosage: UNK

REACTIONS (1)
  - Death [Fatal]
